FAERS Safety Report 8553869-3 (Version None)
Quarter: 2012Q3

REPORT INFORMATION
  Report Type: 
  Country: None (occurrence: None)
  Receive Date: 20120731
  Receipt Date: 20120720
  Transmission Date: 20120928
  Serious: Yes (Hospitalization)
  Sender: FDA-Public Use
  Company Number: US-BAYER-2012-007709

PATIENT
  Age: 19 Year
  Sex: Female
  Weight: 70.295 kg

DRUGS (5)
  1. YAZ [Suspect]
     Dosage: UNK
  2. ZYRTEC [Concomitant]
     Dosage: UNK
  3. YASMIN [Suspect]
     Indication: MENSTRUAL CYCLE MANAGEMENT
     Dosage: UNK
     Dates: start: 20100201, end: 20101001
  4. PERCOCET [Concomitant]
     Dosage: UNK
  5. VICODIN [Concomitant]
     Dosage: UNK

REACTIONS (9)
  - ANXIETY [None]
  - EMOTIONAL DISTRESS [None]
  - PANIC REACTION [None]
  - INJURY [None]
  - PLEURITIC PAIN [None]
  - GENERAL PHYSICAL HEALTH DETERIORATION [None]
  - MUSCLE SPASMS [None]
  - DYSPNOEA [None]
  - PULMONARY EMBOLISM [None]
